FAERS Safety Report 4809847-0 (Version None)
Quarter: 2005Q4

REPORT INFORMATION
  Report Type: 
  Country: None (occurrence: None)
  Receive Date: 20051026
  Receipt Date: 20051017
  Transmission Date: 20060501
  Serious: Yes (Life-Threatening, Hospitalization)
  Sender: FDA-Public Use
  Company Number: US-JNJFOC-20050905063

PATIENT
  Sex: Female
  Weight: 77.57 kg

DRUGS (3)
  1. REMICADE [Suspect]
     Route: 042
  2. REMICADE [Suspect]
     Indication: RHEUMATOID ARTHRITIS
     Route: 042
  3. METHOTREXATE [Concomitant]

REACTIONS (3)
  - LUNG DISORDER [None]
  - OXYGEN SATURATION ABNORMAL [None]
  - PALLIATIVE CARE [None]
